FAERS Safety Report 19390547 (Version 1)
Quarter: 2021Q2

REPORT INFORMATION
  Report Type: Spontaneous
  Country: US (occurrence: US)
  Receive Date: 20210608
  Receipt Date: 20210608
  Transmission Date: 20210717
  Serious: Yes (Other)
  Sender: FDA-Public Use
  Company Number: US-AMNEAL PHARMACEUTICALS-2021-AMRX-02106

PATIENT
  Sex: Female

DRUGS (1)
  1. NADOLOL. [Suspect]
     Active Substance: NADOLOL
     Indication: PRODUCT USED FOR UNKNOWN INDICATION
     Dosage: MOTHER TOOK 40 MILLIGRAM, DAILY
     Route: 064

REACTIONS (8)
  - Cardio-respiratory distress [Unknown]
  - Foetal exposure during pregnancy [Unknown]
  - Small for dates baby [Unknown]
  - Hypoglycaemia neonatal [Recovered/Resolved]
  - Neonatal hypoxia [Unknown]
  - Oligohydramnios [Unknown]
  - Foetal growth restriction [Unknown]
  - Bradycardia [Unknown]
